FAERS Safety Report 19788578 (Version 1)
Quarter: 2021Q3

REPORT INFORMATION
  Report Type: Spontaneous
  Country: US (occurrence: US)
  Receive Date: 20210904
  Receipt Date: 20210904
  Transmission Date: 20211014
  Serious: No
  Sender: FDA-Public Use
  Company Number: US-ASTRAZENECA-2021A690793

PATIENT
  Sex: Female
  Weight: 59 kg

DRUGS (1)
  1. PULMICORT FLEXHALER [Suspect]
     Active Substance: BUDESONIDE
     Indication: ASTHMA
     Dosage: 180 MCG 1 INHALATION DAILY
     Route: 055

REACTIONS (4)
  - Device malfunction [Unknown]
  - Dyspnoea exertional [Unknown]
  - Drug dose omission by device [Unknown]
  - Intentional device misuse [Unknown]
